FAERS Safety Report 11717218 (Version 3)
Quarter: 2015Q4

REPORT INFORMATION
  Report Type: Spontaneous
  Country: US (occurrence: US)
  Receive Date: 20151104
  Receipt Date: 20151120
  Transmission Date: 20160304
  Serious: No
  Sender: FDA-Public Use
  Company Number: US-ELI_LILLY_AND_COMPANY-US201108008558

PATIENT
  Age: 81 Year
  Sex: Female
  Weight: 40.8 kg

DRUGS (4)
  1. FORTEO [Suspect]
     Active Substance: TERIPARATIDE
     Dosage: 20 UG, QD
     Route: 065
  2. FORTEO [Suspect]
     Active Substance: TERIPARATIDE
     Dosage: 20 UG, QD
     Route: 065
  3. FORTEO [Suspect]
     Active Substance: TERIPARATIDE
     Dosage: 20 UG, QD
     Route: 065
  4. FORTEO [Suspect]
     Active Substance: TERIPARATIDE
     Indication: OSTEOPOROSIS
     Dosage: 20 UG, QD
     Route: 065
     Dates: start: 201108

REACTIONS (19)
  - Gait disturbance [Unknown]
  - Seasonal allergy [Unknown]
  - Eye swelling [Unknown]
  - Incorrect product storage [Unknown]
  - Contusion [Unknown]
  - Increased tendency to bruise [Unknown]
  - Memory impairment [Unknown]
  - Back pain [Not Recovered/Not Resolved]
  - Blister [Unknown]
  - Injection site bruising [Unknown]
  - Pain [Not Recovered/Not Resolved]
  - Fatigue [Unknown]
  - Injection site haemorrhage [Unknown]
  - Muscle spasms [Recovered/Resolved]
  - Medication error [Unknown]
  - Vein disorder [Unknown]
  - Pruritus [Unknown]
  - Dysphonia [Unknown]
  - Dysstasia [Unknown]

NARRATIVE: CASE EVENT DATE: 201207
